FAERS Safety Report 21391389 (Version 1)
Quarter: 2022Q3

REPORT INFORMATION
  Report Type: Spontaneous
  Country: FR (occurrence: FR)
  Receive Date: 20220929
  Receipt Date: 20220929
  Transmission Date: 20221026
  Serious: Yes (Other)
  Sender: FDA-Public Use
  Company Number: FR-009507513-2209FRA006055

PATIENT
  Age: 54 Year
  Sex: Male
  Weight: 94 kg

DRUGS (1)
  1. DELSTRIGO [Suspect]
     Active Substance: DORAVIRINE\LAMIVUDINE\TENOFOVIR DISOPROXIL FUMARATE
     Dosage: UNK
     Route: 048
     Dates: start: 202103, end: 20220913

REACTIONS (6)
  - Choking [Unknown]
  - Dysphagia [Unknown]
  - Wrong technique in product usage process [Unknown]
  - Product use complaint [Unknown]
  - Product size issue [Unknown]
  - Product coating issue [Unknown]

NARRATIVE: CASE EVENT DATE: 20210301
